FAERS Safety Report 15354363 (Version 1)
Quarter: 2018Q4

REPORT INFORMATION
  Report Type: Spontaneous
  Country: AU (occurrence: AU)
  Receive Date: 20180906
  Receipt Date: 20180906
  Transmission Date: 20190204
  Serious: Yes (Other)
  Sender: FDA-Public Use
  Company Number: AU-SUN PHARMACEUTICAL INDUSTRIES LTD-2018RR-183574

PATIENT
  Age: 46 Year
  Sex: Female

DRUGS (3)
  1. BETAMETHASONE VALERATE 5% [Suspect]
     Active Substance: BETAMETHASONE VALERATE
     Indication: RASH
     Dosage: UNK
     Route: 061
  2. DOXYCYCLINE. [Suspect]
     Active Substance: DOXYCYCLINE
     Indication: RASH
     Dosage: 100 MG, DAILY
     Route: 048
  3. ERLOTINIB [Suspect]
     Active Substance: ERLOTINIB
     Indication: NON-SMALL CELL LUNG CANCER METASTATIC
     Dosage: 150 MG, DAILY
     Route: 065

REACTIONS (4)
  - Rash papular [Recovering/Resolving]
  - Rash pustular [Recovering/Resolving]
  - Dermatitis acneiform [Recovering/Resolving]
  - Drug ineffective [Unknown]
